FAERS Safety Report 6371520-8 (Version None)
Quarter: 2009Q3

REPORT INFORMATION
  Report Type: 
  Country: None (occurrence: None)
  Receive Date: 20090923
  Receipt Date: 20090722
  Transmission Date: 20100115
  Serious: Yes (Other)
  Sender: FDA-Public Use
  Company Number: US-ASTRAZENECA-2007UW15794

PATIENT
  Age: 31 Year
  Sex: Female
  Weight: 97.5 kg

DRUGS (17)
  1. SEROQUEL [Suspect]
     Indication: SLEEP DISORDER
     Dosage: 100-1000 MG
     Route: 048
     Dates: start: 19990101
  2. SEROQUEL [Suspect]
     Indication: SCHIZOPHRENIA
     Dosage: 100-1000 MG
     Route: 048
     Dates: start: 19990101
  3. SEROQUEL [Suspect]
     Indication: BIPOLAR DISORDER
     Dosage: 100-1000 MG
     Route: 048
     Dates: start: 19990101
  4. SEROQUEL [Suspect]
     Indication: DEPRESSION
     Dosage: 100-1000 MG
     Route: 048
     Dates: start: 19990101
  5. SEROQUEL [Suspect]
     Dosage: 200-800MG
     Route: 048
     Dates: start: 20060823
  6. SEROQUEL [Suspect]
     Dosage: 200-800MG
     Route: 048
     Dates: start: 20060823
  7. SEROQUEL [Suspect]
     Dosage: 200-800MG
     Route: 048
     Dates: start: 20060823
  8. SEROQUEL [Suspect]
     Dosage: 200-800MG
     Route: 048
     Dates: start: 20060823
  9. DEPAKOTE [Concomitant]
     Dosage: 1,750 MG/DAY
     Dates: start: 19970101
  10. BUSPAR [Concomitant]
     Dates: start: 20010220
  11. CLONAZEPAM [Concomitant]
     Dates: start: 19970101, end: 20020101
  12. LOVASTATIN [Concomitant]
     Dosage: 40 MG,2 TABLETS
     Dates: start: 20090416
  13. BENAZEPRIL HYDROCHLORIDE [Concomitant]
     Dosage: 5-20 MG
     Route: 048
     Dates: start: 20090416
  14. TEMAZEPAM [Concomitant]
     Dates: start: 20080815
  15. EFFEXOR [Concomitant]
     Dates: start: 20010419
  16. ABILIFY [Concomitant]
     Dates: start: 20060801
  17. NAVANE [Concomitant]
     Dates: start: 19940101

REACTIONS (5)
  - BLOOD CHOLESTEROL INCREASED [None]
  - DIABETIC COMA [None]
  - DIABETIC KETOACIDOSIS [None]
  - PANCREATITIS [None]
  - TYPE 2 DIABETES MELLITUS [None]
